FAERS Safety Report 5242463-8 (Version None)
Quarter: 2007Q1

REPORT INFORMATION
  Report Type: 
  Country: None (occurrence: None)
  Receive Date: 20070221
  Receipt Date: 20070212
  Transmission Date: 20070707
  Serious: Yes (Death, Other)
  Sender: FDA-Public Use
  Company Number: EG-AVENTIS-200620059GDDC

PATIENT
  Age: 53 Year
  Sex: Female
  Weight: 96 kg

DRUGS (3)
  1. TAXOTERE [Suspect]
     Route: 042
     Dates: start: 20060814, end: 20060905
  2. PLATINOL [Suspect]
     Route: 042
     Dates: start: 20060814, end: 20060905
  3. FLUOROURACIL [Suspect]
     Route: 041
     Dates: start: 20060814, end: 20060905

REACTIONS (4)
  - CARDIAC ARREST [None]
  - DIARRHOEA [None]
  - FEBRILE NEUTROPENIA [None]
  - MUCOSAL INFLAMMATION [None]
